FAERS Safety Report 24793859 (Version 1)
Quarter: 2024Q4

REPORT INFORMATION
  Report Type: Spontaneous
  Country: AU (occurrence: AU)
  Receive Date: 20241231
  Receipt Date: 20241231
  Transmission Date: 20250115
  Serious: Yes (Other)
  Sender: ALKEM
  Company Number: None

PATIENT
  Age: 4 Decade
  Sex: Male

DRUGS (8)
  1. TACROLIMUS [Suspect]
     Active Substance: TACROLIMUS
     Indication: Immunosuppressant drug therapy
     Dosage: UNK
     Route: 065
  2. POSACONAZOLE [Suspect]
     Active Substance: POSACONAZOLE
     Indication: Pseudomonas infection
     Dosage: UNK
     Route: 048
  3. POSACONAZOLE [Suspect]
     Active Substance: POSACONAZOLE
     Indication: Aspergillus infection
  4. POSACONAZOLE [Suspect]
     Active Substance: POSACONAZOLE
     Indication: Pneumonia fungal
  5. POSACONAZOLE [Suspect]
     Active Substance: POSACONAZOLE
     Indication: Scedosporium infection
  6. METHYLPREDNISOLONE [Suspect]
     Active Substance: METHYLPREDNISOLONE
     Indication: Immunosuppressant drug therapy
     Dosage: UNK, (HIGH DOSE)
     Route: 065
  7. HUMAN IMMUNOGLOBULIN G [Suspect]
     Active Substance: HUMAN IMMUNOGLOBULIN G
     Indication: Immunosuppressant drug therapy
     Dosage: UNK
     Route: 042
  8. PREDNISOLONE [Suspect]
     Active Substance: PREDNISOLONE
     Indication: Immunosuppressant drug therapy
     Dosage: UNK
     Route: 065

REACTIONS (10)
  - Transplant rejection [Unknown]
  - Pseudomonas infection [Recovering/Resolving]
  - Aspergillus infection [Recovering/Resolving]
  - Scedosporium infection [Recovering/Resolving]
  - Pneumonia fungal [Recovering/Resolving]
  - Drug intolerance [Unknown]
  - Gastrointestinal disorder [Unknown]
  - Rash [Unknown]
  - Alopecia [Unknown]
  - Arthralgia [Unknown]
